FAERS Safety Report 23821505 (Version 1)
Quarter: 2024Q2

REPORT INFORMATION
  Report Type: Report from Study
  Country: MX (occurrence: MX)
  Receive Date: 20240506
  Receipt Date: 20240506
  Transmission Date: 20240715
  Serious: Yes (Disabling)
  Sender: FDA-Public Use
  Company Number: MX-Eisai-EC-2024-164915

PATIENT
  Age: 78 Year
  Sex: Female

DRUGS (1)
  1. LENVATINIB MESYLATE [Suspect]
     Active Substance: LENVATINIB MESYLATE
     Indication: Thyroid cancer
     Route: 048
     Dates: start: 20240302, end: 2024

REACTIONS (5)
  - Movement disorder [Unknown]
  - Hypertension [Unknown]
  - Swelling [Unknown]
  - Decreased appetite [Unknown]
  - Malaise [Unknown]

NARRATIVE: CASE EVENT DATE: 20240101
